FAERS Safety Report 5157233-9 (Version None)
Quarter: 2006Q4

REPORT INFORMATION
  Report Type: 
  Country: None (occurrence: None)
  Receive Date: 20061113
  Receipt Date: 20061026
  Transmission Date: 20070319
  Serious: Yes (Other)
  Sender: FDA-Public Use
  Company Number: THYM-11152

PATIENT

DRUGS (5)
  1. THYMOGLOBULIN [Suspect]
     Indication: RENAL TRANSPLANT
     Dosage: 1.5 MG/KG ONCE IV
     Route: 042
  2. TACROLIMUS [Concomitant]
  3. MYCOPHENOLATE MOFETIL [Concomitant]
  4. ZENAPAX [Concomitant]
  5. SOLU-MEDROL [Concomitant]

REACTIONS (5)
  - COMPLICATIONS OF TRANSPLANTED KIDNEY [None]
  - NEPHROPATHY TOXIC [None]
  - PERITONEAL DIALYSIS [None]
  - PROCEDURAL HYPOTENSION [None]
  - PYREXIA [None]
